FAERS Safety Report 6894198-3 (Version None)
Quarter: 2010Q3

REPORT INFORMATION
  Report Type: 
  Country: None (occurrence: None)
  Receive Date: 20100802
  Receipt Date: 20100719
  Transmission Date: 20110219
  Serious: Yes (Hospitalization)
  Sender: FDA-Public Use
  Company Number: PHHY2010FR41988

PATIENT
  Sex: Female
  Weight: 51 kg

DRUGS (8)
  1. RASILEZ [Suspect]
     Indication: HYPERTENSION
     Dosage: 150 MG, QD
     Dates: start: 20100401, end: 20100601
  2. IRBESARTAN + HYDROCHLOROTHIAZIDE [Concomitant]
     Indication: HYPERTENSION
  3. HYPERIUM [Concomitant]
     Indication: HYPERTENSION
     Dosage: 2 MG, UNK
  4. LIPANTHYL [Concomitant]
  5. ASPEGIC 1000 [Concomitant]
  6. DUPHALAC [Concomitant]
  7. DI ANTALVIC [Concomitant]
  8. OROCAL D3 [Concomitant]

REACTIONS (5)
  - BLOOD PRESSURE INCREASED [None]
  - DIZZINESS [None]
  - HEADACHE [None]
  - MOVEMENT DISORDER [None]
  - VERTIGO [None]
